FAERS Safety Report 5226485-9 (Version None)
Quarter: 2007Q1

REPORT INFORMATION
  Report Type: 
  Country: None (occurrence: None)
  Receive Date: 20061201
  Receipt Date: 20060919
  Transmission Date: 20070707
  Serious: No
  Sender: FDA-Public Use
  Company Number: US200609004877

PATIENT
  Age: 57 Year
  Sex: Female

DRUGS (3)
  1. CYMBALTA [Suspect]
     Indication: DEPRESSION
     Dosage: 60 MG, DAILY (1/D)
     Dates: start: 20060601, end: 20060801
  2. CHOLESTEROL- AND TRIGLYCERIDE REDUCERS [Concomitant]
  3. CELEXA [Concomitant]

REACTIONS (2)
  - AMNESIA [None]
  - SUICIDAL IDEATION [None]
